FAERS Safety Report 5206937-8 (Version None)
Quarter: 2007Q1

REPORT INFORMATION
  Report Type: 
  Country: None (occurrence: None)
  Receive Date: 20070105
  Receipt Date: 20070105
  Transmission Date: 20070707
  Serious: Yes (Other)
  Sender: FDA-Public Use
  Company Number: None

PATIENT
  Age: 56 Year
  Weight: 78.0187 kg

DRUGS (5)
  1. ALBUTEROL [Suspect]
     Indication: ASTHMA
     Dosage: USED AS NEEDED FOR ASTHMA (SEVERAL TIMES A DAY)
     Dates: start: 19910101
  2. ZYRTEC-D [Concomitant]
  3. TYLENOL [Concomitant]
  4. PAXIL [Concomitant]
  5. ACETAZOLAMIDE [Concomitant]

REACTIONS (6)
  - DIZZINESS [None]
  - DYSPNOEA [None]
  - HEADACHE [None]
  - THROAT TIGHTNESS [None]
  - URTICARIA [None]
  - VOMITING [None]
